FAERS Safety Report 16529281 (Version 1)
Quarter: 2019Q3

REPORT INFORMATION
  Report Type: Spontaneous
  Country: ES (occurrence: ES)
  Receive Date: 20190704
  Receipt Date: 20190704
  Transmission Date: 20191004
  Serious: Yes (Other)
  Sender: FDA-Public Use
  Company Number: PHHY2019ES153185

PATIENT

DRUGS (3)
  1. LCZ696 [Suspect]
     Active Substance: SACUBITRIL\VALSARTAN
     Dosage: 97/103 MG, Q12H
     Route: 065
  2. LCZ696 [Suspect]
     Active Substance: SACUBITRIL\VALSARTAN
     Indication: SYSTOLIC DYSFUNCTION
     Dosage: 24/26 MG, Q12H
     Route: 065
  3. LCZ696 [Suspect]
     Active Substance: SACUBITRIL\VALSARTAN
     Dosage: 49/51 MG, Q12H
     Route: 065

REACTIONS (1)
  - Pulmonary oedema [Unknown]
